FAERS Safety Report 24317189 (Version 1)
Quarter: 2024Q3

REPORT INFORMATION
  Report Type: Spontaneous
  Country: DE (occurrence: DE)
  Receive Date: 20240913
  Receipt Date: 20240913
  Transmission Date: 20241016
  Serious: Yes (Other)
  Sender: HETERO
  Company Number: DE-UCBSA-2024042534

PATIENT
  Age: 7 Month
  Sex: Female

DRUGS (2)
  1. LEVETIRACETAM [Suspect]
     Active Substance: LEVETIRACETAM
     Indication: Infantile spasms
     Dosage: 40 MILLIGRAM/KILOGRAM (DOSE INCREASED)
     Route: 065
  2. LEVETIRACETAM [Suspect]
     Active Substance: LEVETIRACETAM
     Indication: Off label use
     Dosage: 30 MILLIGRAM/KILOGRAM
     Route: 065

REACTIONS (6)
  - Cerebral atrophy [Unknown]
  - Seizure [Unknown]
  - Hypotonia [Unknown]
  - Motor developmental delay [Unknown]
  - Strabismus [Unknown]
  - Off label use [Unknown]
